FAERS Safety Report 25297977 (Version 1)
Quarter: 2025Q2

REPORT INFORMATION
  Report Type: Spontaneous
  Country: US (occurrence: US)
  Receive Date: 20250512
  Receipt Date: 20250512
  Transmission Date: 20250716
  Serious: No
  Sender: UCB
  Company Number: US-UCBSA-2024043159

PATIENT
  Sex: Male

DRUGS (1)
  1. CIMZIA [Suspect]
     Active Substance: CERTOLIZUMAB PEGOL
     Indication: Rheumatoid arthritis
     Dosage: 200 MILLIGRAM (1 SYRINGE), EV 2 WEEKS(QOW)
     Route: 058
     Dates: start: 202309

REACTIONS (2)
  - Product availability issue [Unknown]
  - Product dose omission issue [Unknown]
